FAERS Safety Report 8254439-7 (Version None)
Quarter: 2012Q2

REPORT INFORMATION
  Report Type: 
  Country: None (occurrence: None)
  Receive Date: 20120403
  Receipt Date: 20120321
  Transmission Date: 20120825
  Serious: Yes (Other)
  Sender: FDA-Public Use
  Company Number: SE-AMGEN-SWECT2012013174

PATIENT
  Age: 82 Year
  Sex: Male

DRUGS (5)
  1. AZATHIOPRINE [Concomitant]
     Dosage: UNK
     Dates: start: 20020107, end: 20120123
  2. INFLUVAC [Suspect]
     Indication: RHEUMATOID ARTHRITIS
     Dosage: 0.5 ML, SINGLE
     Route: 058
     Dates: start: 20111110, end: 20111110
  3. INFLUENZA VACCINE [Concomitant]
     Dosage: UNK
     Dates: start: 20111110
  4. ETANERCEPT [Suspect]
     Indication: RHEUMATOID ARTHRITIS
     Dosage: 50 MG, WEEKLY
     Route: 058
     Dates: start: 20071212, end: 20111120
  5. PREDNISOLONE [Concomitant]
     Dosage: UNK
     Dates: start: 20000530

REACTIONS (2)
  - INFLUENZA LIKE ILLNESS [None]
  - LUNG DISORDER [None]
